FAERS Safety Report 7126579-7 (Version None)
Quarter: 2010Q4

REPORT INFORMATION
  Report Type: 
  Country: None (occurrence: None)
  Receive Date: 20101129
  Receipt Date: 20101125
  Transmission Date: 20110411
  Serious: Yes (Life-Threatening)
  Sender: FDA-Public Use
  Company Number: IE-PFIZER INC-IE-WYE-G06860110

PATIENT
  Age: 74 Year
  Sex: Male
  Weight: 90.85 kg

DRUGS (16)
  1. TAZOCIN [Suspect]
     Indication: SEPSIS
     Dosage: 4.5 G, 1X/DAY
     Route: 042
     Dates: start: 20101021, end: 20101022
  2. LYRICA [Concomitant]
     Dosage: 200 MG, 2X/DAY
     Route: 048
  3. OMEPRAZOLE [Concomitant]
     Dosage: 20 MG, 2X/DAY
     Route: 048
  4. URSO FALK [Concomitant]
     Dosage: 250 MG, 2X/DAY
     Route: 048
  5. CREON [Concomitant]
     Dosage: WITH MEALS
     Route: 048
  6. AUGMENTIN [Concomitant]
     Dosage: 1.2 G, 3X/DAY
     Route: 042
     Dates: start: 20101001
  7. METRONIDAZOLE [Concomitant]
     Dosage: 500 MG, 3X/DAY
     Route: 042
     Dates: start: 20101001
  8. ONDANSETRON [Concomitant]
     Dosage: 4 MG 1 TIMES PER 1 PRN
     Route: 042
     Dates: start: 20101001
  9. PHOSPHATE-SANDOZ [Concomitant]
     Dosage: 1 DF 1 TIMES PER 1 PRN
     Route: 048
     Dates: start: 20101001
  10. TRAMADOL [Concomitant]
     Dosage: 100 MG 1 TIMES PER 1 TOT
     Route: 048
     Dates: start: 20101001
  11. OXYNORM [Concomitant]
     Dosage: 10 MG 1 TIMES PER 1 PRN
     Route: 048
     Dates: start: 20101001
  12. FENTANYL [Concomitant]
     Dosage: 12 UG 1 TIMES PER 1 HR
     Route: 062
     Dates: start: 20101001
  13. PARVOLEX [Concomitant]
     Dosage: UNK
     Route: 055
     Dates: start: 20101001
  14. ENOXAPARIN SODIUM [Concomitant]
     Dosage: 40 MG, 1X/DAY
     Route: 058
     Dates: start: 20101001
  15. NEXIUM [Concomitant]
     Dosage: 40 MG, 1X/DAY
     Route: 042
     Dates: start: 20101001
  16. BISOPROLOL [Concomitant]
     Dosage: 5 MG, 1X/DAY
     Route: 048

REACTIONS (4)
  - ASPIRATION [None]
  - CARDIAC ARREST [None]
  - URTICARIA [None]
  - VOMITING [None]
